FAERS Safety Report 21200187 (Version 1)
Quarter: 2022Q3

REPORT INFORMATION
  Report Type: Spontaneous
  Country: US (occurrence: None)
  Receive Date: 20220810
  Receipt Date: 20220810
  Transmission Date: 20221027
  Serious: Yes (Other)
  Sender: FDA-Public Use
  Company Number: None

PATIENT
  Age: 78 Year
  Sex: Female
  Weight: 79.65 kg

DRUGS (1)
  1. LEXISCAN [Suspect]
     Active Substance: REGADENOSON

REACTIONS (5)
  - Chills [None]
  - Seizure [None]
  - Muscle twitching [None]
  - Panic attack [None]
  - Hypersensitivity [None]

NARRATIVE: CASE EVENT DATE: 20210722
